FAERS Safety Report 4307577-5 (Version None)
Quarter: 2004Q1

REPORT INFORMATION
  Report Type: 
  Country: None (occurrence: None)
  Receive Date: 20040225
  Receipt Date: 20040204
  Transmission Date: 20041129
  Serious: Yes (Hospitalization)
  Sender: FDA-Public Use
  Company Number: WAES 01051756

PATIENT
  Age: 73 Year
  Sex: Male

DRUGS (15)
  1. ZOCOR [Suspect]
     Indication: BLOOD CHOLESTEROL INCREASED
     Dosage: 80 MG/DAILY/PO
     Route: 048
     Dates: start: 20000101, end: 20010101
  2. LOPID [Suspect]
     Dosage: 600 MG
     Dates: start: 19980101
  3. AVAPRO [Concomitant]
  4. COLACE [Concomitant]
  5. LASIX [Concomitant]
  6. NEPHROCAPS [Concomitant]
  7. NEURONTIN [Concomitant]
  8. PLAVIX [Concomitant]
  9. PLETAL [Concomitant]
  10. PREVACID [Concomitant]
  11. PROTONIX [Concomitant]
  12. TOPROL-XL [Concomitant]
  13. TYLENOL (CAPLET) [Concomitant]
  14. COLESTIPOL HYDROCHOLORIDE [Concomitant]
  15. INSULIN [Concomitant]

REACTIONS (2)
  - RENAL FAILURE [None]
  - RHABDOMYOLYSIS [None]
